FAERS Safety Report 17171051 (Version 12)
Quarter: 2022Q3

REPORT INFORMATION
  Report Type: Report from Study
  Country: US (occurrence: US)
  Receive Date: 20191218
  Receipt Date: 20220913
  Transmission Date: 20221026
  Serious: No
  Sender: FDA-Public Use
  Company Number: US-INCYTE CORPORATION-2019IN011631

PATIENT

DRUGS (19)
  1. JAKAFI [Suspect]
     Active Substance: RUXOLITINIB
     Indication: Essential thrombocythaemia
     Dosage: 15 MILLIGRAM, QD
     Route: 048
     Dates: start: 20190426
  2. DULOXETINE [Concomitant]
     Active Substance: DULOXETINE
     Indication: Fibromyalgia
     Dosage: 60 MILLIGRAM, QD
     Route: 065
     Dates: start: 20171214
  3. HYDROCHLOROTHIAZIDE [Concomitant]
     Active Substance: HYDROCHLOROTHIAZIDE
     Indication: Hypertension
     Dosage: 25 MILLIGRAM, QD
     Route: 065
     Dates: start: 20170724, end: 20210604
  4. LEVOTHYROXINE [Concomitant]
     Active Substance: LEVOTHYROXINE
     Indication: Hypothyroidism
     Dosage: 137 MICROGRAM, QD
     Route: 065
     Dates: start: 20180125
  5. LISINOPRIL [Concomitant]
     Active Substance: LISINOPRIL
     Indication: Hypertension
     Dosage: 20 MILLIGRAM, QD
     Route: 065
     Dates: start: 20170330, end: 20210604
  6. OMEPRAZOLE [Concomitant]
     Active Substance: OMEPRAZOLE
     Indication: Gastric disorder
     Dosage: 40 MILLIGRAM, TID
     Route: 065
     Dates: start: 20180119, end: 20200304
  7. PENNSAID [Concomitant]
     Active Substance: DICLOFENAC SODIUM
     Indication: Arthritis
     Dosage: 20 MICROGRAM, BID
     Route: 065
     Dates: start: 20170313, end: 20210710
  8. ONDANSETRON [Concomitant]
     Active Substance: ONDANSETRON
     Indication: Nausea
     Dosage: 4 MILLIGRAM, PRN
     Route: 065
     Dates: start: 20181121, end: 20190718
  9. ALBUTEROL SULFATE [Concomitant]
     Active Substance: ALBUTEROL SULFATE
     Indication: Asthma
     Dosage: 90 MICROGRAM, PRN
     Route: 065
     Dates: start: 20190827, end: 20211028
  10. ANAGRELIDE [Concomitant]
     Active Substance: ANAGRELIDE
     Indication: Essential thrombocythaemia
     Dosage: 0.5 MILLIGRAM, QD
     Route: 065
     Dates: start: 20190718, end: 20191224
  11. ASPIRIN [Concomitant]
     Active Substance: ASPIRIN
     Indication: Essential thrombocythaemia
     Dosage: 81 MILLIGRAM, QD
     Route: 065
     Dates: start: 20190122
  12. ATORVASTATIN [Concomitant]
     Active Substance: ATORVASTATIN
     Indication: Dyslipidaemia
     Dosage: 80 MILLIGRAM, QD
     Route: 065
     Dates: start: 20210604
  13. BUMETANIDE [Concomitant]
     Active Substance: BUMETANIDE
     Indication: Oedema
     Dosage: 1 MILLIGRAM, PRN
     Route: 065
     Dates: start: 20210604
  14. COLCHICINE [Concomitant]
     Active Substance: COLCHICINE
     Indication: Pericarditis
     Dosage: 0.6 MILLIGRAM, QD
     Route: 065
     Dates: start: 20210810
  15. HYDROXYUREA [Concomitant]
     Active Substance: HYDROXYUREA
     Indication: Essential thrombocythaemia
     Dosage: 500 MILLIGRAM, BID
     Route: 065
     Dates: start: 20210618
  16. LOSARTAN [Concomitant]
     Active Substance: LOSARTAN
     Indication: Hypertension
     Dosage: 25 MILLIGRAM, QD
     Route: 065
     Dates: start: 20210605
  17. METOPROLOL TARTRATE [Concomitant]
     Active Substance: METOPROLOL TARTRATE
     Indication: Hypertension
     Dosage: 25 MILLIGRAM, BID
     Route: 065
     Dates: start: 20210604
  18. NITROGLYCERIN [Concomitant]
     Active Substance: NITROGLYCERIN
     Indication: Prophylaxis
     Dosage: 0.4 MILLIGRAM, PRN
     Route: 065
     Dates: start: 20210626
  19. PRASUGREL [Concomitant]
     Active Substance: PRASUGREL
     Indication: Prophylaxis
     Dosage: 10 MILLIGRAM, QD
     Route: 065
     Dates: start: 20210605

REACTIONS (4)
  - Rash [Recovering/Resolving]
  - Oral herpes [Not Recovered/Not Resolved]
  - Stomatitis [Not Recovered/Not Resolved]
  - Mucosal inflammation [Recovered/Resolved]

NARRATIVE: CASE EVENT DATE: 20190617
